FAERS Safety Report 12840061 (Version 2)
Quarter: 2017Q3

REPORT INFORMATION
  Report Type: Report from Study
  Country: US (occurrence: US)
  Receive Date: 20161012
  Receipt Date: 20170911
  Transmission Date: 20171127
  Serious: Yes (Hospitalization, Other)
  Sender: FDA-Public Use
  Company Number: US-CELGENEUS-USA-2016052803

PATIENT
  Age: 83 Year
  Sex: Male
  Weight: 77.3 kg

DRUGS (56)
  1. VITAMIN C [Concomitant]
     Indication: SUPPLEMENTATION THERAPY
     Dosage: 2000 MILLIGRAM
     Route: 048
     Dates: start: 20120907
  2. VITAMIN C [Concomitant]
     Route: 048
     Dates: start: 20160505
  3. FUROSEMIDE [Concomitant]
     Indication: PRODUCT USED FOR UNKNOWN INDICATION
     Dosage: 40 MILLIGRAM
     Route: 048
  4. ONDANSETRON [Concomitant]
     Active Substance: ONDANSETRON
     Indication: PRODUCT USED FOR UNKNOWN INDICATION
     Dosage: 16 MILLIGRAM
     Route: 041
  5. ASA [Concomitant]
     Active Substance: ASPIRIN
     Indication: PROPHYLAXIS
     Dosage: 325 MILLIGRAM
     Route: 048
     Dates: start: 20120907
  6. CARVEDILOL [Concomitant]
     Dosage: 12.5 MILLIGRAM
     Route: 048
     Dates: start: 20160506
  7. GLUCOSAMINE CHONDROITIN [Concomitant]
     Active Substance: CHONDROITIN SULFATE (BOVINE)\GLUCOSAMINE HYDROCHLORIDE
     Indication: ARTHRITIS
     Dosage: 2 CAPSULE
     Route: 048
     Dates: start: 20120907
  8. VITAMIN D3 [Concomitant]
     Indication: SUPPLEMENTATION THERAPY
     Dosage: 4000 IU (INTERNATIONAL UNIT)
     Route: 048
     Dates: start: 20120907
  9. BETA CAROTENE [Concomitant]
     Indication: SUPPLEMENTATION THERAPY
     Dosage: 15000 IU (INTERNATIONAL UNIT)
     Route: 048
     Dates: start: 20120907
  10. TRAMADOL [Concomitant]
     Indication: BACK PAIN
     Route: 048
     Dates: start: 20140723
  11. ENOXAPARIN [Concomitant]
     Active Substance: ENOXAPARIN
     Indication: THROMBOSIS PROPHYLAXIS
     Dosage: 40 MILLIGRAM
     Route: 058
  12. CALCIUM VITAMIN D [Concomitant]
     Active Substance: CALCIUM\VITAMIN D
     Indication: SUPPLEMENTATION THERAPY
     Dosage: 2 TABLET
     Route: 048
     Dates: start: 20160506
  13. MEMANTINE. [Concomitant]
     Active Substance: MEMANTINE
     Dosage: 20 MILLIGRAM
     Route: 048
     Dates: start: 20160506
  14. POTASSIUM CHLORIDE [Concomitant]
     Indication: PROPHYLAXIS
     Dosage: 60 MILLIEQUIVALENTS
     Route: 048
     Dates: start: 20120907
  15. TOLTERODINE [Concomitant]
     Active Substance: TOLTERODINE
     Indication: CONSTIPATION
     Dosage: 4 MILLIGRAM
     Route: 048
     Dates: start: 20160506, end: 20160512
  16. MORPHINE [Concomitant]
     Active Substance: MORPHINE
     Indication: PRODUCT USED FOR UNKNOWN INDICATION
     Dosage: 24 MILLIGRAM
     Route: 041
  17. FLUOCINONIDE. [Concomitant]
     Active Substance: FLUOCINONIDE
     Indication: ANTIINFLAMMATORY THERAPY
     Route: 061
     Dates: start: 20120907
  18. COENZYME Q [Concomitant]
     Indication: SUPPLEMENTATION THERAPY
     Dosage: 100 MILLIGRAM
     Route: 048
     Dates: start: 20120907
  19. BACTRIM [Concomitant]
     Indication: PROPHYLAXIS
     Dosage: .4286 TABLET
     Route: 048
     Dates: start: 20130704, end: 20160427
  20. NORMAL SALINE [Concomitant]
     Active Substance: SODIUM CHLORIDE
     Route: 041
     Dates: start: 20160427, end: 20160427
  21. DEXAMETHASONE. [Suspect]
     Active Substance: DEXAMETHASONE
     Route: 065
     Dates: start: 20130312, end: 20130412
  22. FUROSEMIDE [Concomitant]
     Dosage: 40 MILLIGRAM
     Route: 048
     Dates: start: 20120907
  23. POLYETHYLENE GLYCOL 3350 [Concomitant]
     Indication: LAXATIVE SUPPORTIVE CARE
     Dosage: 17 GRAM
     Route: 048
  24. HYZAAR [Concomitant]
     Indication: HYPERTENSION
     Dosage: 100-25MG
     Route: 048
     Dates: start: 20120907
  25. ANDRODERM [Concomitant]
     Active Substance: TESTOSTERONE
     Indication: HYPOGONADISM
     Route: 065
     Dates: start: 20120907
  26. VALACYCLOVIR [Concomitant]
     Indication: PROPHYLAXIS
     Dosage: 500 MILLIGRAM
     Route: 048
     Dates: start: 20120907
  27. PROBIOTIC [Concomitant]
     Active Substance: PROBIOTICS NOS
     Indication: DYSPEPSIA
     Dosage: 1 CAPSULE
     Route: 048
     Dates: start: 20120907
  28. LECITHIN [Concomitant]
     Active Substance: LECITHIN
     Indication: SUPPLEMENTATION THERAPY
     Dosage: 2400 MILLIGRAM
     Route: 048
     Dates: start: 20120907
  29. TYLENOL [Concomitant]
     Indication: BACK PAIN
     Route: 048
     Dates: start: 20130919
  30. ACY-241 [Suspect]
     Active Substance: INVESTIGATIONAL PRODUCT
     Indication: PLASMA CELL MYELOMA
     Dosage: 360 MILLIGRAM
     Route: 048
     Dates: start: 20160330
  31. DEXAMETHASONE. [Suspect]
     Active Substance: DEXAMETHASONE
     Dosage: 20 MILLIGRAM
     Route: 048
  32. WARFARIN [Concomitant]
     Active Substance: WARFARIN
     Indication: THROMBOSIS PROPHYLAXIS
     Dosage: 6 MILLIGRAM
     Route: 048
     Dates: start: 20130329
  33. DOCUSATE [Concomitant]
     Active Substance: DOCUSATE
     Indication: CONSTIPATION PROPHYLAXIS
     Dosage: 200 MILLIGRAM
     Route: 048
     Dates: start: 20130301
  34. PLENDIL [Concomitant]
     Active Substance: FELODIPINE
     Indication: HYPERTENSION
     Dosage: 10 MILLIGRAM
     Route: 048
     Dates: start: 20120907
  35. MULTIVITAMINS [Concomitant]
     Active Substance: VITAMINS
     Indication: NUTRITIONAL SUPPLEMENTATION
     Dosage: 1 CAPSULE
     Route: 048
     Dates: start: 20120907
  36. NORMAL SALINE [Concomitant]
     Active Substance: SODIUM CHLORIDE
     Indication: BLOOD CREATININE INCREASED
     Route: 041
     Dates: start: 20160420, end: 20160420
  37. DEXAMETHASONE. [Suspect]
     Active Substance: DEXAMETHASONE
     Route: 065
     Dates: start: 20130530, end: 20160218
  38. DEXAMETHASONE. [Suspect]
     Active Substance: DEXAMETHASONE
     Dosage: 20 MILLIGRAM
     Route: 048
     Dates: start: 20160330
  39. DITROPAN [Concomitant]
     Active Substance: OXYBUTYNIN CHLORIDE
     Indication: HYPERTONIC BLADDER
     Dosage: 15 MILLIGRAM
     Route: 048
     Dates: start: 20120907
  40. SELENIUM [Concomitant]
     Active Substance: SELENIUM
     Indication: SUPPLEMENTATION THERAPY
     Dosage: 30 MICROGRAM
     Route: 048
     Dates: start: 20120907
  41. LUTEIN [Concomitant]
     Active Substance: LUTEIN
     Indication: SUPPLEMENTATION THERAPY
     Dosage: 40 MILLIGRAM
     Route: 048
     Dates: start: 20120907
  42. L-GLUTAMINE [Concomitant]
     Indication: SUPPLEMENTATION THERAPY
     Dosage: 1 TEASPOON
     Route: 048
     Dates: start: 20120907
  43. ALBUTEROL [Concomitant]
     Indication: PROPHYLAXIS
     Dosage: 8 DOSAGE FORMS
     Route: 065
     Dates: start: 20160506
  44. WARFARIN [Concomitant]
     Active Substance: WARFARIN
     Indication: DEEP VEIN THROMBOSIS
     Dosage: 6 MILLIGRAM
     Route: 048
  45. POMALYST [Suspect]
     Active Substance: POMALIDOMIDE
     Indication: PLASMA CELL MYELOMA
     Dosage: 4 MILLIGRAM
     Route: 048
     Dates: start: 20160330
  46. DEXAMETHASONE. [Suspect]
     Active Substance: DEXAMETHASONE
     Indication: PLASMA CELL MYELOMA
     Route: 065
     Dates: start: 20120915, end: 20130115
  47. CALCIUM VITAMIN D [Concomitant]
     Active Substance: CALCIUM\VITAMIN D
     Dosage: 600MG/400IU
     Route: 048
     Dates: start: 20120907
  48. PROSCAR [Concomitant]
     Active Substance: FINASTERIDE
     Indication: BENIGN PROSTATIC HYPERPLASIA
     Dosage: 5 MILLIGRAM
     Route: 048
     Dates: start: 20120907
  49. ZOMETA [Concomitant]
     Indication: PROPHYLAXIS
     Dosage: .1333 MILLIGRAM
     Route: 041
     Dates: start: 20150108
  50. ALBUTEROL [Concomitant]
     Dosage: 360 MICROGRAM
     Route: 065
     Dates: start: 20160505, end: 20160512
  51. FLUTICASONE [Concomitant]
     Indication: PROPHYLAXIS
     Dosage: 200 MICROGRAM
     Route: 045
     Dates: start: 20160505, end: 20160512
  52. MEMANTINE. [Concomitant]
     Active Substance: MEMANTINE
     Indication: AMNESIA
     Dosage: 56 MILLIGRAM
     Route: 048
     Dates: start: 20130808
  53. POLYETHYLENE GLYCOL 3350 [Concomitant]
     Route: 048
     Dates: start: 20130301
  54. CARVEDILOL [Concomitant]
     Indication: HYPERTENSION
     Dosage: 12.5 MILLIGRAM
     Route: 048
     Dates: start: 20120907
  55. RESVERA WINE [Concomitant]
     Indication: SUPPLEMENTATION THERAPY
     Dosage: 1000 MILLIGRAM
     Route: 048
     Dates: start: 20120907
  56. ULTRA CHROMIUM PICOLINATE [Concomitant]
     Indication: SUPPLEMENTATION THERAPY
     Dosage: 500 MICROGRAM
     Route: 048
     Dates: start: 20120907

REACTIONS (7)
  - Spinal column stenosis [Recovered/Resolved]
  - Neutropenia [Not Recovered/Not Resolved]
  - Decreased appetite [Not Recovered/Not Resolved]
  - Productive cough [Not Recovered/Not Resolved]
  - Back pain [Recovered/Resolved]
  - Gastrooesophageal reflux disease [Recovered/Resolved]
  - Fatigue [Recovered/Resolved]

NARRATIVE: CASE EVENT DATE: 20160419
